FAERS Safety Report 4507834-3 (Version None)
Quarter: 2004Q4

REPORT INFORMATION
  Report Type: 
  Country: None (occurrence: None)
  Receive Date: 20041123
  Receipt Date: 20040915
  Transmission Date: 20050328
  Serious: Yes (Hospitalization)
  Sender: FDA-Public Use
  Company Number: US-AMGEN-PRA091373

PATIENT
  Sex: Female

DRUGS (3)
  1. NEULASTA [Suspect]
     Indication: CHEMOTHERAPY
     Route: 058
     Dates: start: 20040810, end: 20040908
  2. ADRIAMYCIN PFS [Suspect]
     Dates: start: 20040809, end: 20040907
  3. CYTOXAN [Suspect]
     Dates: start: 20040809, end: 20040907

REACTIONS (2)
  - PULMONARY OEDEMA [None]
  - TACHYCARDIA [None]
